FAERS Safety Report 24732151 (Version 3)
Quarter: 2025Q2

REPORT INFORMATION
  Report Type: Spontaneous
  Country: US (occurrence: US)
  Receive Date: 20241213
  Receipt Date: 20250512
  Transmission Date: 20250717
  Serious: Yes (Other)
  Sender: NOVARTIS
  Company Number: US-002147023-NVSC2024US235085

PATIENT
  Sex: Female

DRUGS (1)
  1. KISQALI [Suspect]
     Active Substance: RIBOCICLIB SUCCINATE
     Indication: Breast cancer metastatic
     Route: 065
     Dates: start: 20231214

REACTIONS (5)
  - Diabetes mellitus [Unknown]
  - Pleural neoplasm [Unknown]
  - Cancer in remission [Unknown]
  - Blood glucose increased [Unknown]
  - Product prescribing issue [Unknown]
